FAERS Safety Report 13344806 (Version 4)
Quarter: 2017Q2

REPORT INFORMATION
  Report Type: Report from Study
  Country: CO (occurrence: CO)
  Receive Date: 20170317
  Receipt Date: 20170608
  Transmission Date: 20170830
  Serious: Yes (Hospitalization)
  Sender: FDA-Public Use
  Company Number: PHHY2016CO119174

PATIENT
  Age: 47 Year
  Sex: Female
  Weight: 60 kg

DRUGS (3)
  1. REVOLADE [Suspect]
     Active Substance: ELTROMBOPAG
     Dosage: 25 MG, QD
     Route: 048
  2. REVOLADE [Suspect]
     Active Substance: ELTROMBOPAG
     Dosage: 50 MG, QD
     Route: 048
     Dates: end: 20170225
  3. REVOLADE [Suspect]
     Active Substance: ELTROMBOPAG
     Indication: IMMUNE THROMBOCYTOPENIC PURPURA
     Dosage: 50 MG, QD
     Route: 048
     Dates: end: 201611

REACTIONS (13)
  - Cellulitis [Unknown]
  - Petechiae [Recovered/Resolved]
  - Epistaxis [Recovered/Resolved]
  - Malaise [Unknown]
  - Contusion [Recovered/Resolved]
  - Fatigue [Unknown]
  - Petechiae [Recovered/Resolved]
  - Pain in extremity [Unknown]
  - Headache [Not Recovered/Not Resolved]
  - Psychiatric symptom [Unknown]
  - Platelet count decreased [Unknown]
  - Dizziness [Unknown]
  - Dermatitis [Unknown]

NARRATIVE: CASE EVENT DATE: 201608
